FAERS Safety Report 4438661-3 (Version None)
Quarter: 2004Q3

REPORT INFORMATION
  Report Type: 
  Country: None (occurrence: None)
  Receive Date: 20040830
  Receipt Date: 20040830
  Transmission Date: 20050211
  Serious: Yes (Other)
  Sender: FDA-Public Use
  Company Number: None

PATIENT
  Age: 45 Year
  Sex: Female
  Weight: 151.955 kg

DRUGS (1)
  1. ADVAIR DISKUS 100/50 [Suspect]
     Indication: ASTHMA
     Dosage: 1 PUFF TWICE DAIL RESPIRATORY
     Route: 055
     Dates: start: 20040806, end: 20040829

REACTIONS (3)
  - MUSCLE CRAMP [None]
  - ORAL PAIN [None]
  - TONGUE BLISTERING [None]
